FAERS Safety Report 6666308-4 (Version None)
Quarter: 2010Q1

REPORT INFORMATION
  Report Type: 
  Country: None (occurrence: None)
  Receive Date: 20100331
  Receipt Date: 20100324
  Transmission Date: 20100710
  Serious: Yes (Hospitalization)
  Sender: FDA-Public Use
  Company Number: 2010-00369

PATIENT
  Age: 67 Year
  Sex: Female

DRUGS (1)
  1. RAMIPRIL [Suspect]
     Indication: HYPERTENSION
     Dosage: PER DAY (5 MG), ORAL
     Route: 048

REACTIONS (6)
  - CHILLS [None]
  - DERMATITIS EXFOLIATIVE [None]
  - FATIGUE [None]
  - PUSTULAR PSORIASIS [None]
  - RASH [None]
  - RASH PUSTULAR [None]
